FAERS Safety Report 25914086 (Version 1)
Quarter: 2025Q4

REPORT INFORMATION
  Report Type: Report from Study
  Country: US (occurrence: US)
  Receive Date: 20251013
  Receipt Date: 20251013
  Transmission Date: 20260117
  Serious: Yes (Other)
  Sender: PFIZER
  Company Number: US-PFIZER INC-PV202500069890

PATIENT
  Age: 1 Day
  Sex: Female
  Weight: 3.175 kg

DRUGS (5)
  1. NURTEC ODT [Suspect]
     Active Substance: RIMEGEPANT SULFATE
     Indication: Migraine
     Dosage: 75 MG, AS NEEDED (PRN)
     Route: 064
     Dates: start: 20210326
  2. NURTEC ODT [Suspect]
     Active Substance: RIMEGEPANT SULFATE
     Indication: Migraine prophylaxis
     Dosage: 75 MG, ALTERNATE DAY (QOD)
     Route: 064
     Dates: start: 20250106
  3. ACETAMINOPHEN [Suspect]
     Active Substance: ACETAMINOPHEN
     Indication: Migraine
     Dosage: 1000 MG, AS NEEDED
     Route: 064
  4. METOCLOPRAMIDE [Suspect]
     Active Substance: METOCLOPRAMIDE
     Indication: Migraine
     Dosage: 10 MG, AS NEEDED
     Route: 064
  5. ONDANSETRON [Suspect]
     Active Substance: ONDANSETRON
     Indication: Migraine
     Dosage: 4 MG, AS NEEDED
     Route: 064

REACTIONS (2)
  - Maternal exposure during pregnancy [Recovered/Resolved]
  - Apgar score low [Recovered/Resolved]

NARRATIVE: CASE EVENT DATE: 20250531
